FAERS Safety Report 10093476 (Version 1)
Quarter: 2014Q2

REPORT INFORMATION
  Report Type: Spontaneous
  Country: US (occurrence: US)
  Receive Date: 20140421
  Receipt Date: 20140421
  Transmission Date: 20141212
  Serious: No
  Sender: FDA-Public Use
  Company Number: US-SA-2013SA136117

PATIENT
  Age: 80 Year
  Sex: Male

DRUGS (3)
  1. ALLEGRA [Suspect]
     Indication: UPPER-AIRWAY COUGH SYNDROME
     Route: 048
     Dates: start: 20131227
  2. ALLEGRA [Suspect]
     Indication: NASAL CONGESTION
     Route: 048
     Dates: start: 20131227
  3. CLARITIN [Concomitant]

REACTIONS (1)
  - Micturition disorder [Not Recovered/Not Resolved]
